FAERS Safety Report 4319972-9 (Version None)
Quarter: 2004Q1

REPORT INFORMATION
  Report Type: 
  Country: None (occurrence: None)
  Receive Date: 20040317
  Receipt Date: 20040302
  Transmission Date: 20041129
  Serious: Yes (Death, Hospitalization)
  Sender: FDA-Public Use
  Company Number: A-US2003-02067

PATIENT
  Age: 61 Year
  Sex: Female
  Weight: 109 kg

DRUGS (20)
  1. TRACLEER [Suspect]
     Indication: PULMONARY HYPERTENSION
     Dosage: SEE IMAGE
     Dates: start: 20020601, end: 20020802
  2. TRACLEER [Suspect]
     Indication: PULMONARY HYPERTENSION
     Dosage: SEE IMAGE
     Dates: start: 20020802, end: 20021212
  3. CYTOXAN [Suspect]
     Dates: end: 20021201
  4. COUMADIN [Concomitant]
  5. LASIX [Concomitant]
  6. ZAROXOLYN [Concomitant]
  7. POTASSIUM (POTASSIUM) [Concomitant]
  8. REMERON [Concomitant]
  9. XANAX [Concomitant]
  10. TRIMETHOPRIM [Concomitant]
  11. SULPHAMETHOXAZOLE (SULFAMETHOXAZOLE) [Concomitant]
  12. CORTICOSTEROIDS (CORTICOSTEROID NOS) [Concomitant]
  13. LEVAQUIN [Concomitant]
  14. BACTRIM [Concomitant]
  15. PRILOSEC [Concomitant]
  16. FLUDROCORTISONE ACETATE TAB [Concomitant]
  17. PREDNISONE [Concomitant]
  18. MIACALCIN [Concomitant]
  19. CALCIUM (CALCIUM) [Concomitant]
  20. VITAMIN D [Concomitant]

REACTIONS (18)
  - ASCITES [None]
  - BLOOD IMMUNOGLOBULIN G DECREASED [None]
  - BLOOD IMMUNOGLOBULIN M DECREASED [None]
  - CONDITION AGGRAVATED [None]
  - DRUG TOXICITY [None]
  - EPISTAXIS [None]
  - HAEMATOTOXICITY [None]
  - HAEMOGLOBIN DECREASED [None]
  - HAEMOPTYSIS [None]
  - HYPOXIA [None]
  - LOCALISED OEDEMA [None]
  - OEDEMA PERIPHERAL [None]
  - PANCYTOPENIA [None]
  - PNEUMOCYSTIS CARINII PNEUMONIA [None]
  - PNEUMONIA LEGIONELLA [None]
  - PULMONARY FIBROSIS [None]
  - TRICUSPID VALVE INCOMPETENCE [None]
  - WEIGHT INCREASED [None]
